FAERS Safety Report 14546907 (Version 36)
Quarter: 2023Q4

REPORT INFORMATION
  Report Type: Spontaneous
  Country: US (occurrence: US)
  Receive Date: 20180219
  Receipt Date: 20231218
  Transmission Date: 20240109
  Serious: No
  Sender: FDA-Public Use
  Company Number: US-PFIZER INC-2018065042

PATIENT
  Age: 70 Year
  Sex: Female
  Weight: 86 kg

DRUGS (15)
  1. IBRANCE [Suspect]
     Active Substance: PALBOCICLIB
     Indication: Breast cancer stage IV
     Dosage: 125 MG, CYCLIC (ONCE PER DAY FOR 21 DAYS AND OFF FOR 7 DAYS)
     Route: 048
     Dates: start: 20171212
  2. IBRANCE [Suspect]
     Active Substance: PALBOCICLIB
     Dosage: 125 MG, CYCLIC, (ONCE PER DAY FOR 21 DAYS AND OFF FOR 7 DAYS)
     Route: 048
     Dates: start: 20171212
  3. IBRANCE [Suspect]
     Active Substance: PALBOCICLIB
     Dosage: 125 MG, CYCLIC (FOR 21 DAYS)
     Route: 048
     Dates: start: 20171212
  4. IBRANCE [Suspect]
     Active Substance: PALBOCICLIB
     Dosage: 125 MG, CYCLIC (FOR 21 DAYS ON, 7 DAYS OFF)
     Route: 048
     Dates: start: 20171212
  5. IBRANCE [Suspect]
     Active Substance: PALBOCICLIB
     Dosage: 125 MG, CYCLIC (FOR 21 DAYS ON, 7 DAYS OFF)
     Route: 048
  6. IBRANCE [Suspect]
     Active Substance: PALBOCICLIB
     Dosage: 125 MG, CYCLIC (FOR 21 DAYS ON, 7 DAYS OFF)
     Route: 048
  7. IBRANCE [Suspect]
     Active Substance: PALBOCICLIB
     Dosage: 125 MG, CYCLIC (ONCE A DAY FOR 21 DAYS AND THEN OFF FOR 7 DAYS)
     Route: 048
     Dates: start: 20171213
  8. LETROZOLE [Suspect]
     Active Substance: LETROZOLE
     Indication: Breast cancer stage IV
     Dosage: 2.5 MG, 1X/DAY
     Route: 048
     Dates: start: 20171107
  9. CALCIUM [Suspect]
     Active Substance: CALCIUM
     Dosage: UNK
  10. CALCIUM PLUS WITH MAGNESIUM + VITAMIN D [Concomitant]
     Indication: Vitamin supplementation
     Dosage: 4 DF, DAILY
     Route: 048
     Dates: start: 20171204, end: 2017
  11. CALCIUM PLUS WITH MAGNESIUM + VITAMIN D [Concomitant]
     Dosage: 2 DF, DAILY (CONTAINS 800 IUS VITAMIN D; 1000 MG CALCIUM; 500 MG MAGNESIUM)
     Route: 048
     Dates: start: 2017
  12. CALCIUM PLUS WITH MAGNESIUM + VITAMIN D [Concomitant]
     Dosage: UNK
     Dates: start: 2018
  13. SUPER CAL MAG [Concomitant]
     Dosage: UNK
  14. IBUPROFEN [Concomitant]
     Active Substance: IBUPROFEN
     Dosage: UNK
  15. CYANOCOBALAMIN\FOLIC ACID [Concomitant]
     Active Substance: CYANOCOBALAMIN\FOLIC ACID
     Dosage: UNK

REACTIONS (27)
  - White blood cell count decreased [Not Recovered/Not Resolved]
  - Asthenia [Recovering/Resolving]
  - Stress [Unknown]
  - Depressed mood [Unknown]
  - Fatigue [Not Recovered/Not Resolved]
  - Anxiety [Unknown]
  - Fear [Unknown]
  - Blood creatinine increased [Unknown]
  - Glomerular filtration rate decreased [Unknown]
  - Infection [Recovering/Resolving]
  - Malaise [Unknown]
  - Dizziness [Unknown]
  - Sinusitis [Unknown]
  - Tumour marker increased [Not Recovered/Not Resolved]
  - Gastrointestinal disorder [Unknown]
  - Lung disorder [Not Recovered/Not Resolved]
  - Emotional disorder [Unknown]
  - Alopecia [Not Recovered/Not Resolved]
  - Therapeutic response unexpected [Unknown]
  - Pre-existing condition improved [Unknown]
  - Immune system disorder [Unknown]
  - Muscle strain [Unknown]
  - Myalgia [Unknown]
  - Renal disorder [Unknown]
  - Sleep disorder [Unknown]
  - Neutrophil count decreased [Unknown]
  - Heart rate increased [Unknown]

NARRATIVE: CASE EVENT DATE: 20171206
